FAERS Safety Report 5853613-4 (Version None)
Quarter: 2008Q3

REPORT INFORMATION
  Report Type: 
  Country: None (occurrence: None)
  Receive Date: 20080822
  Receipt Date: 20080813
  Transmission Date: 20090109
  Serious: Yes (Other)
  Sender: FDA-Public Use
  Company Number: US-JNJFOC-20080803542

PATIENT
  Sex: Female
  Weight: 45.36 kg

DRUGS (2)
  1. REMICADE [Suspect]
     Route: 042
  2. REMICADE [Suspect]
     Indication: CROHN'S DISEASE
     Route: 042

REACTIONS (2)
  - CYANOSIS [None]
  - OXYGEN SATURATION DECREASED [None]
